FAERS Safety Report 25318450 (Version 4)
Quarter: 2025Q4

REPORT INFORMATION
  Report Type: Spontaneous
  Country: US (occurrence: US)
  Receive Date: 20250515
  Receipt Date: 20251010
  Transmission Date: 20260118
  Serious: No
  Sender: SANDOZ
  Company Number: US-SANDOZ-SDZ2025US029234

PATIENT

DRUGS (2)
  1. HEPARIN [Suspect]
     Active Substance: HEPARIN SODIUM
     Dosage: 10,000 UNITS/ML, 10 ML INJECTION
     Route: 042
  2. HEPARIN [Suspect]
     Active Substance: HEPARIN SODIUM
     Indication: Catheterisation cardiac
     Dosage: 1000 UNITS/ML, 10 ML INJECTION
     Route: 065

REACTIONS (2)
  - Drug effect less than expected [Unknown]
  - Product quality issue [Unknown]
